FAERS Safety Report 10413550 (Version 1)
Quarter: 2014Q3

REPORT INFORMATION
  Report Type: Spontaneous
  Country: SE (occurrence: SE)
  Receive Date: 20140827
  Receipt Date: 20140827
  Transmission Date: 20150326
  Serious: Yes (Other)
  Sender: FDA-Public Use
  Company Number: SE-PFIZER INC-2014236641

PATIENT
  Age: 76 Year
  Sex: Male

DRUGS (1)
  1. ARTHROTEC FORTE [Suspect]
     Active Substance: DICLOFENAC SODIUM\MISOPROSTOL
     Indication: PROSTATITIS
     Dosage: 1 DF, 1X/DAY
     Dates: start: 201402

REACTIONS (1)
  - Urinary retention [Not Recovered/Not Resolved]

NARRATIVE: CASE EVENT DATE: 2014
